FAERS Safety Report 5918097-6 (Version None)
Quarter: 2008Q4

REPORT INFORMATION
  Report Type: 
  Country: None (occurrence: None)
  Receive Date: 20081014
  Receipt Date: 20081002
  Transmission Date: 20090506
  Serious: Yes (Death)
  Sender: FDA-Public Use
  Company Number: GB-PFIZER INC-2008084484

PATIENT
  Age: 54 Year
  Sex: Female
  Weight: 83 kg

DRUGS (2)
  1. CHANTIX [Suspect]
     Indication: SMOKING CESSATION THERAPY
     Route: 048
     Dates: start: 20080730, end: 20080907
  2. ORLISTAT [Concomitant]
     Dates: start: 20080610

REACTIONS (1)
  - DEATH [None]
